FAERS Safety Report 10715777 (Version 1)
Quarter: 2015Q1

REPORT INFORMATION
  Report Type: Spontaneous
  Country: US (occurrence: None)
  Receive Date: 20150109
  Receipt Date: 20150109
  Transmission Date: 20150721
  Serious: Yes (Hospitalization)
  Sender: FDA-Public Use
  Company Number: 2014PROUSA03717

PATIENT
  Age: 50 Year
  Sex: Male
  Weight: 107.5 kg

DRUGS (3)
  1. PROLIA [Concomitant]
     Active Substance: DENOSUMAB
  2. PROVENGE [Suspect]
     Active Substance: SIPULEUCEL-T
     Indication: PROSTATE CANCER METASTATIC
     Dosage: 250 ML, SINGLE, INTRAVENOUS?
     Route: 042
     Dates: start: 20140424, end: 20140424
  3. VITAMIN D (COLECALCIFEROL) [Concomitant]

REACTIONS (2)
  - Culture positive [None]
  - Device related infection [None]

NARRATIVE: CASE EVENT DATE: 20140508
